FAERS Safety Report 4999752-1 (Version None)
Quarter: 2006Q2

REPORT INFORMATION
  Report Type: 
  Country: None (occurrence: None)
  Receive Date: 20060511
  Receipt Date: 20060503
  Transmission Date: 20061013
  Serious: Yes (Hospitalization)
  Sender: FDA-Public Use
  Company Number: FR-GLAXOSMITHKLINE-B0422462A

PATIENT
  Age: 82 Year
  Sex: Female

DRUGS (1)
  1. AUGMENTIN '125' [Suspect]
     Indication: INFECTED SKIN ULCER
     Dosage: 1G TWICE PER DAY
     Route: 048
     Dates: start: 20060214, end: 20060216

REACTIONS (1)
  - HENOCH-SCHONLEIN PURPURA [None]
